FAERS Safety Report 22525927 (Version 2)
Quarter: 2023Q2

REPORT INFORMATION
  Report Type: Report from Study
  Country: NL (occurrence: NL)
  Receive Date: 20230606
  Receipt Date: 20230609
  Transmission Date: 20230722
  Serious: Yes (Other)
  Sender: FDA-Public Use
  Company Number: NL-VER-202300053

PATIENT
  Age: 71 Year
  Sex: Male

DRUGS (1)
  1. TRIPTORELIN PAMOATE [Suspect]
     Active Substance: TRIPTORELIN PAMOATE
     Indication: Prostate cancer
     Dosage: UPON FOLLOW UP THE OTHER BATCH NUMBERS WERE REPORTED WERE W12525, W26459 AND EXPIRY DATES JUN-2024 A
     Route: 030
     Dates: start: 20220512

REACTIONS (1)
  - Metastasis [Unknown]
